FAERS Safety Report 20651881 (Version 1)
Quarter: 2022Q1

REPORT INFORMATION
  Report Type: Spontaneous
  Country: US (occurrence: US)
  Receive Date: 20220330
  Receipt Date: 20220330
  Transmission Date: 20220424
  Serious: Yes (Hospitalization)
  Sender: FDA-Public Use
  Company Number: US-NOVARTISPH-NVSC2022US069496

PATIENT
  Sex: Female

DRUGS (1)
  1. VOTRIENT [Suspect]
     Active Substance: PAZOPANIB HYDROCHLORIDE
     Indication: Uterine cancer
     Dosage: 400 MG, QD
     Route: 048
     Dates: start: 202202

REACTIONS (4)
  - COVID-19 [Unknown]
  - Pain [Unknown]
  - Cancer pain [Unknown]
  - Sinus disorder [Unknown]
